FAERS Safety Report 7069408-2 (Version None)
Quarter: 2010Q4

REPORT INFORMATION
  Report Type: 
  Country: None (occurrence: None)
  Receive Date: 20101028
  Receipt Date: 20101022
  Transmission Date: 20110411
  Serious: Yes (Other)
  Sender: FDA-Public Use
  Company Number: AR-AMGEN-KDC425283

PATIENT
  Sex: Male
  Weight: 78.5 kg

DRUGS (5)
  1. DENOSUMAB [Suspect]
     Indication: PROSTATE CANCER
     Dosage: UNK UNK, QMO
     Route: 058
     Dates: start: 20061030, end: 20091123
  2. MEPREDNISONE [Concomitant]
     Dosage: 10 MG, UNK
     Route: 048
     Dates: start: 20080814, end: 20090303
  3. MEPREDNISONE [Concomitant]
     Dosage: 10 MG, QD
     Route: 048
     Dates: start: 20090812
  4. RETINOL [Concomitant]
     Dosage: UNK UNK, QD
     Route: 048
  5. SUPRADYN [Concomitant]
     Dosage: UNK UNK, QD
     Route: 048

REACTIONS (1)
  - OSTEONECROSIS OF JAW [None]
